FAERS Safety Report 9132322 (Version 2)
Quarter: 2013Q1

REPORT INFORMATION
  Report Type: Spontaneous
  Country: US (occurrence: US)
  Receive Date: 20130301
  Receipt Date: 20130311
  Transmission Date: 20140127
  Serious: Yes (Other)
  Sender: FDA-Public Use
  Company Number: US-PFIZER INC-2013073491

PATIENT
  Age: 31 Year
  Sex: Female
  Weight: 155 kg

DRUGS (6)
  1. LYRICA [Suspect]
     Indication: FIBROMYALGIA
     Dosage: 100 MG, AS NEEDED
  2. LYRICA [Suspect]
     Indication: PAIN IN EXTREMITY
  3. LYRICA [Suspect]
     Indication: PAIN IN EXTREMITY
  4. NUCYNTA ER [Concomitant]
     Indication: PAIN
     Dosage: 200 MG, 2X/DAY
  5. SAVELLA [Concomitant]
     Indication: PAIN
     Dosage: 200 MG, 2X/DAY
  6. ZOLOFT [Concomitant]
     Dosage: UNK

REACTIONS (5)
  - Gastric disorder [Unknown]
  - Weight decreased [Unknown]
  - Blood iron decreased [Unknown]
  - Malabsorption [Unknown]
  - Inappropriate schedule of drug administration [Unknown]
